FAERS Safety Report 8596827 (Version 4)
Quarter: 2013Q1

REPORT INFORMATION
  Report Type: Report from Study
  Country: JP (occurrence: JP)
  Receive Date: 20120605
  Receipt Date: 20130208
  Transmission Date: 20140127
  Serious: Yes (Hospitalization, Other)
  Sender: FDA-Public Use
  Company Number: JP-ASTELLAS-2012US005180

PATIENT
  Age: 57 Year
  Sex: Male
  Weight: 56 kg

DRUGS (29)
  1. ERLOTINIB TABLET [Suspect]
     Indication: ADENOCARCINOMA PANCREAS
     Dosage: 100 MG, UID/QD
     Route: 048
     Dates: start: 20120315, end: 20120507
  2. ERLOTINIB TABLET [Suspect]
     Dosage: 100 MG, UID/QD
     Route: 048
     Dates: start: 20120705
  3. GEMCITABINE HYDROCHLORIDE [Suspect]
     Indication: ADENOCARCINOMA PANCREAS
     Dosage: 1000 MG/M2, UID/QD
     Route: 041
     Dates: start: 20120315, end: 20120315
  4. GEMCITABINE HYDROCHLORIDE [Suspect]
     Dosage: 1000 MG/M2, UID/QD
     Route: 041
     Dates: start: 20120322, end: 20120322
  5. GEMCITABINE HYDROCHLORIDE [Suspect]
     Dosage: 1000 MG/M2, UID/QD
     Route: 041
     Dates: start: 20120405, end: 20120405
  6. GEMCITABINE HYDROCHLORIDE [Suspect]
     Dosage: 1000 MG/M2, UID/QD
     Route: 041
     Dates: start: 20120428, end: 20120428
  7. GEMCITABINE HYDROCHLORIDE [Suspect]
     Dosage: 1000 MG/M2, UID/QD
     Route: 041
     Dates: start: 20120614, end: 20120614
  8. GEMCITABINE HYDROCHLORIDE [Suspect]
     Dosage: 1000 MG/M2, UID/QD
     Route: 041
     Dates: start: 20120621, end: 20120621
  9. GEMCITABINE HYDROCHLORIDE [Suspect]
     Dosage: 1000 MG, UID/QD
     Route: 041
     Dates: start: 20120705, end: 20120705
  10. GEMCITABINE HYDROCHLORIDE [Suspect]
     Dosage: 800 MG, UID/QD
     Route: 041
     Dates: start: 20120719, end: 20120719
  11. GEMCITABINE HYDROCHLORIDE [Suspect]
     Dosage: 800 MG, UID/QD
     Route: 041
     Dates: start: 20120726, end: 20120726
  12. GEMCITABINE HYDROCHLORIDE [Suspect]
     Dosage: 800 MG, UID/QD
     Route: 041
     Dates: start: 20120802, end: 20120802
  13. GEMCITABINE HYDROCHLORIDE [Suspect]
     Dosage: 800 MG, UID/QD
     Route: 041
     Dates: start: 20120816, end: 20120816
  14. GEMCITABINE HYDROCHLORIDE [Suspect]
     Dosage: 800 MG, UID/QD
     Route: 041
     Dates: start: 20120823, end: 20120823
  15. GEMCITABINE HYDROCHLORIDE [Suspect]
     Dosage: 800 MG, UID/QD
     Route: 041
     Dates: start: 20120830, end: 20120830
  16. GEMCITABINE HYDROCHLORIDE [Suspect]
     Dosage: 800 MG, UID/QD
     Route: 041
     Dates: start: 20120913, end: 20120913
  17. GEMCITABINE HYDROCHLORIDE [Suspect]
     Dosage: 800 MG, UID/QD
     Route: 041
     Dates: start: 20120927
  18. PLAVIX [Suspect]
     Indication: CEREBRAL INFARCTION
     Dosage: 75 MG, UID/QD
     Route: 048
     Dates: start: 20120508
  19. PLETAAL [Suspect]
     Indication: CEREBRAL INFARCTION
     Dosage: 100 MG, UID/QD
     Route: 048
     Dates: start: 20120508, end: 20120512
  20. PLETAAL [Suspect]
     Dosage: 200 MG, UID/QD
     Route: 048
     Dates: start: 20120513
  21. HUMALOG [Concomitant]
     Indication: DIABETES MELLITUS
     Dosage: 32 IU, UID/QD
     Route: 058
     Dates: start: 20120521
  22. HUMALOG [Concomitant]
     Dosage: 32 IU, UID/QD
     Route: 058
     Dates: start: 201205, end: 201207
  23. HUMALOG [Concomitant]
     Dosage: 30 IU, UID/QD
     Route: 058
     Dates: start: 20120712
  24. LANTUS [Concomitant]
     Indication: DIABETES MELLITUS
     Dosage: 4 IU, UID/QD
     Route: 058
     Dates: start: 20120521
  25. LANTUS [Concomitant]
     Dosage: 5 IU, UID/QD
     Route: 058
     Dates: start: 20120522
  26. MEVALOTIN [Concomitant]
     Indication: PRODUCT USED FOR UNKNOWN INDICATION
     Dosage: 10 MG, UID/QD
     Route: 048
  27. MICARDIS [Concomitant]
     Indication: PRODUCT USED FOR UNKNOWN INDICATION
     Dosage: 4 MG, UID/QD
     Route: 065
     Dates: end: 20120316
  28. GRANISETRON [Concomitant]
     Indication: PRODUCT USED FOR UNKNOWN INDICATION
     Dosage: 3 MG, UNKNOWN/D
     Route: 042
     Dates: start: 20120315
  29. DEXART [Concomitant]
     Indication: PRODUCT USED FOR UNKNOWN INDICATION
     Dosage: 6.6 MG, UNKNOWN/D
     Route: 042
     Dates: start: 20120315

REACTIONS (12)
  - Platelet count decreased [Recovered/Resolved]
  - Neutrophil count decreased [Recovered/Resolved]
  - Hospitalisation [Unknown]
  - Cerebral infarction [Recovered/Resolved]
  - Dermatitis acneiform [Recovered/Resolved]
  - Platelet count decreased [Recovered/Resolved]
  - Neutrophil count decreased [Recovered/Resolved]
  - White blood cell count decreased [Recovered/Resolved]
  - Platelet count decreased [Recovered/Resolved]
  - Neutrophil count decreased [Unknown]
  - White blood cell count decreased [Unknown]
  - Diabetes mellitus [Recovered/Resolved]
